FAERS Safety Report 5804518-6 (Version None)
Quarter: 2008Q3

REPORT INFORMATION
  Report Type: 
  Country: None (occurrence: None)
  Receive Date: 20080707
  Receipt Date: 20080707
  Transmission Date: 20090109
  Serious: No
  Sender: FDA-Public Use
  Company Number: None

PATIENT
  Age: 57 Year
  Sex: Female
  Weight: 56.246 kg

DRUGS (1)
  1. ESTROGEL [Suspect]
     Indication: HOT FLUSH
     Dosage: 1 + 1/4 GRAMS DAILY TOP
     Route: 061
     Dates: start: 20080101, end: 20080620

REACTIONS (2)
  - BLINDNESS [None]
  - RENAL VEIN OCCLUSION [None]
